FAERS Safety Report 17794759 (Version 2)
Quarter: 2020Q3

REPORT INFORMATION
  Report Type: Spontaneous
  Country: US (occurrence: US)
  Receive Date: 20200515
  Receipt Date: 20200704
  Transmission Date: 20201102
  Serious: No
  Sender: FDA-Public Use
  Company Number: US-ASTRAZENECA-2020SE61358

PATIENT
  Age: 25253 Day
  Sex: Female
  Weight: 85.7 kg

DRUGS (10)
  1. SIMPLY SALINE [Concomitant]
     Indication: MULTIPLE ALLERGIES
     Dosage: AS REQUIRED
     Route: 045
  2. LORATADINE. [Concomitant]
     Active Substance: LORATADINE
     Indication: HYPERSENSITIVITY
     Route: 048
  3. HYDROCHLOROTHIAZIDE. [Concomitant]
     Active Substance: HYDROCHLOROTHIAZIDE
     Indication: BLOOD PRESSURE MEASUREMENT
     Route: 048
  4. ATORVASTATIN [Concomitant]
     Active Substance: ATORVASTATIN
     Indication: BLOOD CHOLESTEROL
     Route: 048
  5. SYMBICORT [Suspect]
     Active Substance: BUDESONIDE\FORMOTEROL FUMARATE DIHYDRATE
     Indication: CHRONIC OBSTRUCTIVE PULMONARY DISEASE
     Dosage: 80?4.5MCG 2 PUFFS TWICE DAILY
     Route: 055
  6. LOSARTAN. [Concomitant]
     Active Substance: LOSARTAN
     Indication: BLOOD PRESSURE MEASUREMENT
     Route: 048
  7. XARELTO [Concomitant]
     Active Substance: RIVAROXABAN
     Indication: ANTICOAGULANT THERAPY
     Route: 048
  8. FLUTICASONE PROPIONATE. [Concomitant]
     Active Substance: FLUTICASONE PROPIONATE
     Indication: MULTIPLE ALLERGIES
     Dosage: 50.0UG AS REQUIRED
     Route: 045
  9. MAGNESIUM [Concomitant]
     Active Substance: MAGNESIUM
     Indication: MEDICAL DIET
     Dosage: 250.0MG AS REQUIRED
     Route: 048
  10. VITAMIN D3 [Concomitant]
     Active Substance: CHOLECALCIFEROL
     Indication: BONE DISORDER
     Dosage: 1000.0IU AS REQUIRED
     Route: 048

REACTIONS (8)
  - Dyspnoea [Recovered/Resolved]
  - Nasopharyngitis [Recovered/Resolved]
  - Device ineffective [Recovered/Resolved]
  - Lung disorder [Recovered/Resolved]
  - Throat irritation [Recovered/Resolved]
  - Product taste abnormal [Unknown]
  - Respiratory tract irritation [Recovered/Resolved]
  - Intentional device misuse [Unknown]

NARRATIVE: CASE EVENT DATE: 20200430
